FAERS Safety Report 7751618-X (Version None)
Quarter: 2011Q3

REPORT INFORMATION
  Report Type: 
  Country: None (occurrence: None)
  Receive Date: 20110914
  Receipt Date: 20110912
  Transmission Date: 20111222
  Serious: Yes (Death)
  Sender: FDA-Public Use
  Company Number: PHHY2011VE81218

PATIENT
  Sex: Male

DRUGS (1)
  1. EXELON [Suspect]
     Indication: AMNESIA
     Dosage: UNK UKN, UNK
     Route: 062

REACTIONS (1)
  - CEREBROVASCULAR ACCIDENT [None]
